FAERS Safety Report 5777925-8 (Version None)
Quarter: 2008Q2

REPORT INFORMATION
  Report Type: 
  Country: None (occurrence: None)
  Receive Date: 20080619
  Receipt Date: 20080611
  Transmission Date: 20081010
  Serious: Yes (Life-Threatening, Hospitalization)
  Sender: FDA-Public Use
  Company Number: GB-RANBAXY-2008RR-15862

PATIENT

DRUGS (8)
  1. SIMVASTATIN 10MG TABLETS [Suspect]
     Indication: MYOCARDIAL ISCHAEMIA
     Dosage: 40 MG, QD
     Route: 048
     Dates: start: 20010101, end: 20080512
  2. SODIUM FUSIDATE [Suspect]
     Indication: ARTHRITIS BACTERIAL
     Dosage: 500 MG, TID
     Route: 048
     Dates: start: 20080331, end: 20080512
  3. AMLODIPINE [Concomitant]
     Indication: HYPERTENSION
     Dosage: 5 MG, QD
  4. ATENOLOL [Concomitant]
     Indication: MYOCARDIAL ISCHAEMIA
     Dosage: 100 MG, QD
  5. BENDROFLUAZIDE [Concomitant]
     Indication: HYPERTENSION
     Dosage: 2.5 MG, QD
     Route: 048
  6. DOXAZOSIN MESYLATE [Concomitant]
     Indication: HYPERTENSION
     Dosage: 4 MG, QD
     Route: 048
  7. FLOXACILLIN SODIUM [Concomitant]
     Indication: ARTHRITIS BACTERIAL
     Dosage: 500 MG, QID
     Route: 048
     Dates: start: 20080331
  8. RAMIPRIL [Concomitant]
     Indication: MYOCARDIAL ISCHAEMIA
     Dosage: 10 MG, QD
     Route: 048

REACTIONS (6)
  - ASTHENIA [None]
  - BLOOD CREATINE PHOSPHOKINASE INCREASED [None]
  - DRUG INTERACTION [None]
  - HYPOXIA [None]
  - MYALGIA [None]
  - RHABDOMYOLYSIS [None]
